FAERS Safety Report 7324377-2 (Version None)
Quarter: 2011Q1

REPORT INFORMATION
  Report Type: 
  Country: None (occurrence: None)
  Receive Date: 20110301
  Receipt Date: 20110223
  Transmission Date: 20110831
  Serious: No
  Sender: FDA-Public Use
  Company Number: US-PFIZER INC-2011040116

PATIENT
  Sex: Female
  Weight: 65.76 kg

DRUGS (3)
  1. SERTRALINE HYDROCHLORIDE [Suspect]
     Indication: SLEEP DISORDER
     Dosage: 25 MG, 1X/DAY
     Route: 048
     Dates: start: 20101207, end: 20110201
  2. VALSARTAN [Concomitant]
     Indication: HYPERTENSION
     Dosage: UNK
  3. ATENOLOL [Concomitant]
     Indication: HYPERTENSION
     Dosage: UNK

REACTIONS (2)
  - TINNITUS [None]
  - INSOMNIA [None]
